FAERS Safety Report 5695738-2 (Version None)
Quarter: 2008Q2

REPORT INFORMATION
  Report Type: 
  Country: None (occurrence: None)
  Receive Date: 20080407
  Receipt Date: 20080331
  Transmission Date: 20081010
  Serious: Yes (Hospitalization)
  Sender: FDA-Public Use
  Company Number: US-BAYER-200818504NA

PATIENT
  Age: 61 Year
  Sex: Male
  Weight: 63 kg

DRUGS (2)
  1. SORAFENIB [Suspect]
     Indication: METASTATIC RENAL CELL CARCINOMA
     Dosage: TOTAL DAILY DOSE: 600 MG  UNIT DOSE: 200 MG
     Route: 048
     Dates: start: 20071201, end: 20080101
  2. INDOMETHACIN [Concomitant]

REACTIONS (2)
  - DYSPNOEA [None]
  - TACHYCARDIA [None]
